FAERS Safety Report 6405919-8 (Version None)
Quarter: 2009Q4

REPORT INFORMATION
  Report Type: 
  Country: None (occurrence: None)
  Receive Date: 20091019
  Receipt Date: 20091019
  Transmission Date: 20100525
  Serious: Yes (Hospitalization, Other)
  Sender: FDA-Public Use
  Company Number: US-ROXANE LABORATORIES, INC.-2009-RO-01068RO

PATIENT
  Age: 65 Year
  Sex: Female

DRUGS (1)
  1. LITHIUM CARBONATE [Suspect]

REACTIONS (5)
  - ABASIA [None]
  - ABNORMAL LOSS OF WEIGHT [None]
  - CONFUSIONAL STATE [None]
  - DYSKINESIA [None]
  - INCONTINENCE [None]
